FAERS Safety Report 8876707 (Version 4)
Quarter: 2012Q4

REPORT INFORMATION
  Report Type: Report from Study
  Country: US (occurrence: US)
  Receive Date: 20121030
  Receipt Date: 20121211
  Transmission Date: 20130627
  Serious: Yes (Hospitalization, Other)
  Sender: FDA-Public Use
  Company Number: US-ROCHE-1073209

PATIENT
  Age: 69 Year
  Sex: Female
  Weight: 64.8 kg

DRUGS (5)
  1. VEMURAFENIB [Suspect]
     Indication: METASTATIC MALIGNANT MELANOMA
     Route: 048
     Dates: start: 20120523, end: 20120622
  2. VEMURAFENIB [Suspect]
     Route: 048
     Dates: start: 20121008
  3. OMEPRAZOLE [Concomitant]
  4. NAPROXEN [Concomitant]
  5. KCL [Concomitant]

REACTIONS (11)
  - Pneumonia [Recovering/Resolving]
  - Rash [Recovered/Resolved]
  - Rash [Recovered/Resolved]
  - Pruritus [Recovered/Resolved]
  - Decreased appetite [Unknown]
  - Nausea [Unknown]
  - Myalgia [Unknown]
  - Arthralgia [Unknown]
  - Fatigue [Unknown]
  - Oedema peripheral [Unknown]
  - Squamous cell carcinoma [Unknown]
